FAERS Safety Report 17749548 (Version 4)
Quarter: 2020Q2

REPORT INFORMATION
  Report Type: Report from Study
  Country: None (occurrence: CH)
  Receive Date: 20200506
  Receipt Date: 20200603
  Transmission Date: 20200714
  Serious: Yes (Hospitalization)
  Sender: FDA-Public Use
  Company Number: CH-ABBVIE-20K-151-3392077-00

PATIENT
  Age: 56 Year
  Sex: Male

DRUGS (4)
  1. DUODOPA [Suspect]
     Active Substance: CARBIDOPA\LEVODOPA
     Indication: PARKINSON^S DISEASE
     Route: 050
     Dates: start: 20170228, end: 20191005
  2. DUODOPA [Suspect]
     Active Substance: CARBIDOPA\LEVODOPA
     Dosage: MD: 3.5 ML, CRD: 3.6 ML/H, CRN: 2.4 ML/H, EXTRA DOSE: 0 ML?24 H THERAPY
     Route: 050
     Dates: start: 20200403, end: 20200503
  3. DUODOPA [Suspect]
     Active Substance: CARBIDOPA\LEVODOPA
     Dosage: MD: 3.5 ML, CRD: 3.6 ML/H, CRN: 2.4 ML/H, EXTRA DOSE: 0 ML?24 H THERAPY
     Route: 050
     Dates: start: 20200504
  4. DUODOPA [Suspect]
     Active Substance: CARBIDOPA\LEVODOPA
     Dosage: MD: 3.5 ML, CRD: 3.8 ML/H, CRN: 3 ML/H, ED: 0 ML?24 H THERAPY
     Route: 050
     Dates: start: 20191005, end: 20200403

REACTIONS (1)
  - Intentional device misuse [Recovered/Resolved]

NARRATIVE: CASE EVENT DATE: 20200503
